FAERS Safety Report 7233755-1 (Version None)
Quarter: 2011Q1

REPORT INFORMATION
  Report Type: 
  Country: None (occurrence: None)
  Receive Date: 20110119
  Receipt Date: 20110111
  Transmission Date: 20110831
  Serious: Yes (Hospitalization)
  Sender: FDA-Public Use
  Company Number: NL-MEDIMMUNE-MEDI-0012193

PATIENT
  Sex: Female
  Weight: 4.725 kg

DRUGS (2)
  1. SYNAGIS [Suspect]
  2. SYNAGIS [Suspect]
     Route: 030
     Dates: start: 20101015, end: 20110106

REACTIONS (1)
  - SENSE OF OPPRESSION [None]
